FAERS Safety Report 13337703 (Version 1)
Quarter: 2017Q1

REPORT INFORMATION
  Report Type: Spontaneous
  Country: FR (occurrence: FR)
  Receive Date: 20170315
  Receipt Date: 20170315
  Transmission Date: 20170428
  Serious: Yes (Hospitalization)
  Sender: FDA-Public Use
  Company Number: FR-009507513-1703FRA005556

PATIENT
  Age: 83 Year
  Sex: Male

DRUGS (6)
  1. PERMIXON [Concomitant]
     Active Substance: SAW PALMETTO
  2. INEGY [Suspect]
     Active Substance: EZETIMIBE\SIMVASTATIN
     Indication: MYOCARDIAL INFARCTION
     Dosage: 1 DF, QD
     Route: 048
  3. KARDEGIC [Suspect]
     Active Substance: ASPIRIN LYSINE
     Indication: MYOCARDIAL INFARCTION
     Dosage: 1 DF, QD
     Route: 048
     Dates: end: 20170222
  4. OGAST [Concomitant]
     Active Substance: LANSOPRAZOLE
  5. UROREC [Concomitant]
     Active Substance: SILODOSIN
  6. RAMIPRIL. [Concomitant]
     Active Substance: RAMIPRIL
     Dosage: UNK

REACTIONS (2)
  - Subdural haematoma [Recovered/Resolved]
  - Intracranial mass [Recovered/Resolved]

NARRATIVE: CASE EVENT DATE: 201701
